FAERS Safety Report 7323280-1 (Version None)
Quarter: 2011Q1

REPORT INFORMATION
  Report Type: 
  Country: None (occurrence: None)
  Receive Date: 20110301
  Receipt Date: 20110218
  Transmission Date: 20110831
  Serious: Yes (Other)
  Sender: FDA-Public Use
  Company Number: US-ELI_LILLY_AND_COMPANY-US201101004620

PATIENT
  Sex: Female

DRUGS (8)
  1. HUMALOG [Suspect]
     Indication: DIABETES MELLITUS
     Dosage: UNK, AS NEEDED
     Dates: start: 20080101
  2. HUMALOG [Suspect]
     Dosage: UNK, AS NEEDED
     Dates: start: 20080101
  3. HUMALOG [Suspect]
     Dosage: UNK, AS NEEDED
     Dates: start: 20080101
  4. HUMALOG [Suspect]
  5. LEVEMIR [Concomitant]
     Dosage: 20 U, EACH MORNING
  6. LEVEMIR [Concomitant]
     Dosage: 18 U, EACH EVENING
  7. HUMALOG [Suspect]
     Dosage: UNK, AS NEEDED
     Dates: start: 20080101
  8. METFORMIN [Concomitant]
     Dosage: 500 MG, 2/D

REACTIONS (12)
  - BLOOD GLUCOSE INCREASED [None]
  - ANXIETY [None]
  - COMA [None]
  - DRUG INEFFECTIVE [None]
  - MALAISE [None]
  - BLOOD PRESSURE INCREASED [None]
  - STRESS [None]
  - INSOMNIA [None]
  - BLOOD GLUCOSE DECREASED [None]
  - BLOOD GLUCOSE FLUCTUATION [None]
  - PRODUCT TAMPERING [None]
  - DRUG DOSE OMISSION [None]
